FAERS Safety Report 4575490-4 (Version None)
Quarter: 2005Q1

REPORT INFORMATION
  Report Type: 
  Country: None (occurrence: None)
  Receive Date: 20050128
  Receipt Date: 20050128
  Transmission Date: 20050727
  Serious: Yes (Other)
  Sender: FDA-Public Use
  Company Number: None

PATIENT
  Sex: Female

DRUGS (1)
  1. PHENYTOIN [Suspect]
     Dosage: 300 MG EVEN DAYS  4 MG ODD DAYS  ORAL
     Route: 048
     Dates: start: 20000408

REACTIONS (1)
  - DRUG TOXICITY [None]
